FAERS Safety Report 13284712 (Version 1)
Quarter: 2017Q1

REPORT INFORMATION
  Report Type: Spontaneous
  Country: US (occurrence: US)
  Receive Date: 20170301
  Receipt Date: 20170301
  Transmission Date: 20170428
  Serious: Yes (Disabling, Other)
  Sender: FDA-Public Use
  Company Number: None

PATIENT
  Age: 6 Year
  Sex: Female
  Weight: 14.4 kg

DRUGS (1)
  1. MIRALAX [Suspect]
     Active Substance: POLYETHYLENE GLYCOL 3350
     Indication: CONSTIPATION

REACTIONS (12)
  - Oropharyngeal pain [None]
  - Paranoia [None]
  - Abdominal pain upper [None]
  - Depression [None]
  - Anger [None]
  - Chills [None]
  - Ulcer [None]
  - Vomiting [None]
  - Aggression [None]
  - Pyrexia [None]
  - Blepharospasm [None]
  - Hair disorder [None]

NARRATIVE: CASE EVENT DATE: 20130610
